FAERS Safety Report 8692845 (Version 2)
Quarter: 2012Q4

REPORT INFORMATION
  Report Type: 
  Country: US (occurrence: US)
  Receive Date: 20120730
  Receipt Date: 20121001
  Transmission Date: 20130627
  Serious: Yes (Hospitalization)
  Sender: FDA-Public Use
  Company Number: US-ELI_LILLY_AND_COMPANY-US201012006625

PATIENT
  Age: 71 Year
  Sex: Female

DRUGS (4)
  1. FORTEO [Suspect]
     Indication: OSTEOPOROSIS
     Dosage: 20 ug, daily (1/D)
     Dates: start: 20101221, end: 201101
  2. FORTEO [Suspect]
     Dosage: 20 ug, qd
     Dates: start: 201102
  3. FORTEO [Suspect]
     Dosage: 20 ug, qd
     Route: 065
  4. FORTEO [Suspect]
     Dosage: 20 ug, qd

REACTIONS (22)
  - Hernia [Unknown]
  - Cystocele [Unknown]
  - Lipoma [Unknown]
  - Scoliosis [Not Recovered/Not Resolved]
  - Bone pain [Unknown]
  - Spinal disorder [Unknown]
  - Pain in extremity [Unknown]
  - Back pain [Unknown]
  - Restless legs syndrome [Unknown]
  - Feeling cold [Unknown]
  - Chills [Unknown]
  - Joint swelling [Not Recovered/Not Resolved]
  - Oedema peripheral [Not Recovered/Not Resolved]
  - Muscular weakness [Unknown]
  - Pain in extremity [Unknown]
  - Pain [Unknown]
  - Arthralgia [Unknown]
  - Arthralgia [Unknown]
  - Injection site pain [Unknown]
  - Muscle spasms [Unknown]
  - Memory impairment [Unknown]
  - Feeling abnormal [Unknown]
